FAERS Safety Report 6711953-0 (Version None)
Quarter: 2010Q2

REPORT INFORMATION
  Report Type: 
  Country: None (occurrence: None)
  Receive Date: 20100505
  Receipt Date: 20100429
  Transmission Date: 20101027
  Serious: Yes (Other)
  Sender: FDA-Public Use
  Company Number: CHPA2010US07700

PATIENT
  Age: 46 Year
  Sex: Female
  Weight: 90.703 kg

DRUGS (4)
  1. VOLTAREN [Suspect]
     Indication: MUSCULOSKELETAL PAIN
     Dosage: 4 G, BID
     Route: 061
     Dates: start: 20100201
  2. VOLTAREN [Suspect]
     Indication: BACK PAIN
  3. VOLTAREN [Suspect]
     Indication: NECK PAIN
  4. OXYCODONE HCL AND ACETAMINOPHEN [Concomitant]
     Indication: NECK PAIN
     Dosage: UNK
     Route: 048
     Dates: start: 20100201

REACTIONS (4)
  - DRUG ADMINISTERED AT INAPPROPRIATE SITE [None]
  - OFF LABEL USE [None]
  - SURGERY [None]
  - THERAPEUTIC RESPONSE UNEXPECTED [None]
